FAERS Safety Report 22262539 (Version 1)
Quarter: 2023Q2

REPORT INFORMATION
  Report Type: Spontaneous
  Country: GB (occurrence: GB)
  Receive Date: 20230428
  Receipt Date: 20230428
  Transmission Date: 20230722
  Serious: Yes (Other)
  Sender: FDA-Public Use
  Company Number: GB-BAXTER-2023BAX017890

PATIENT
  Age: 45 Year
  Sex: Male

DRUGS (6)
  1. ETOPOSIDE [Suspect]
     Active Substance: ETOPOSIDE
     Indication: Adrenocortical carcinoma
     Dosage: FIRST LINE SYSTEMIC THERAPY
     Route: 065
  2. ETOPOSIDE [Suspect]
     Active Substance: ETOPOSIDE
     Indication: DNA mismatch repair protein gene mutation
  3. CISPLATIN [Suspect]
     Active Substance: CISPLATIN
     Indication: DNA mismatch repair protein gene mutation
     Dosage: FIRST LINE SYSTEMIC THERAPY
     Route: 065
  4. CISPLATIN [Suspect]
     Active Substance: CISPLATIN
     Indication: Adrenocortical carcinoma
  5. DOXORUBICIN [Suspect]
     Active Substance: DOXORUBICIN
     Indication: DNA mismatch repair protein gene mutation
     Dosage: FIRST LINE SYSTEMIC THERAPY
     Route: 065
  6. DOXORUBICIN [Suspect]
     Active Substance: DOXORUBICIN
     Indication: Adrenocortical carcinoma

REACTIONS (3)
  - Adrenocortical carcinoma [Unknown]
  - Disease progression [Unknown]
  - DNA mismatch repair protein gene mutation [Unknown]
